FAERS Safety Report 25255890 (Version 5)
Quarter: 2025Q4

REPORT INFORMATION
  Report Type: Spontaneous
  Country: EU (occurrence: EU)
  Receive Date: 20250430
  Receipt Date: 20251203
  Transmission Date: 20260118
  Serious: Yes (Hospitalization, Other)
  Sender: PFIZER
  Company Number: EU-JNJFOC-20250367145

PATIENT
  Age: 65 Year
  Sex: Female
  Weight: 83 kg

DRUGS (7)
  1. BORTEZOMIB [Suspect]
     Active Substance: BORTEZOMIB
     Indication: Plasma cell myeloma
     Dosage: 13 MG/M2
     Route: 058
     Dates: start: 20191001, end: 20200612
  2. BORTEZOMIB [Suspect]
     Active Substance: BORTEZOMIB
     Dosage: UNK (MOST RECENT DOSE)
     Route: 058
     Dates: start: 20200612
  3. LENALIDOMIDE [Suspect]
     Active Substance: LENALIDOMIDE
     Indication: Plasma cell myeloma
     Dosage: 5 MG
     Route: 048
     Dates: start: 20191001, end: 20250304
  4. DARATUMUMAB [Suspect]
     Active Substance: DARATUMUMAB
     Indication: Plasma cell myeloma
     Dosage: 1800 MG
     Route: 058
     Dates: start: 20191001, end: 20230112
  5. DARATUMUMAB [Suspect]
     Active Substance: DARATUMUMAB
     Dosage: UNK (MOST RECENT DOSE)
     Route: 058
     Dates: start: 20230112
  6. DEXAMETHASONE [Suspect]
     Active Substance: DEXAMETHASONE
     Indication: Plasma cell myeloma
     Dosage: 10 MG
     Route: 048
     Dates: start: 20191001, end: 20200610
  7. DEXAMETHASONE [Suspect]
     Active Substance: DEXAMETHASONE
     Dosage: UNK (MOST RECENT DOSE)
     Route: 048
     Dates: start: 20200610

REACTIONS (6)
  - Second primary malignancy [Not Recovered/Not Resolved]
  - Breast cancer [Not Recovered/Not Resolved]
  - Pneumococcal sepsis [Recovered/Resolved]
  - Arthritis infective [Recovered/Resolved]
  - Second primary malignancy [Not Recovered/Not Resolved]
  - Lung adenocarcinoma [Not Recovered/Not Resolved]

NARRATIVE: CASE EVENT DATE: 20250305
